FAERS Safety Report 11326176 (Version 1)
Quarter: 2015Q3

REPORT INFORMATION
  Report Type: Spontaneous
  Country: US (occurrence: None)
  Receive Date: 20150729
  Receipt Date: 20150729
  Transmission Date: 20151125
  Serious: Yes (Other)
  Sender: FDA-Public Use
  Company Number: US-H14001-15-01381

PATIENT
  Age: 49 Year
  Sex: Female

DRUGS (12)
  1. MORPHINE [Concomitant]
     Active Substance: MORPHINE
  2. ONDANSETRON [Suspect]
     Active Substance: ONDANSETRON
     Indication: NAUSEA
     Route: 042
  3. LIDOCAINE. [Concomitant]
     Active Substance: LIDOCAINE
  4. FENTANYL (FENTANYL) (UNKNOWN) (FENTANYL) [Suspect]
     Active Substance: FENTANYL
     Indication: PRODUCT USED FOR UNKNOWN INDICATION
     Dosage: (75 MCG/H, EVERY 72 H),TRANSDERMAL
     Route: 062
  5. CLONAZEPAM. [Concomitant]
     Active Substance: CLONAZEPAM
  6. SALSALATE. [Concomitant]
     Active Substance: SALSALATE
  7. SENNA [Concomitant]
     Active Substance: SENNA LEAF\SENNOSIDES\SENNOSIDES A AND B
  8. METOPROLOL [Concomitant]
     Active Substance: METOPROLOL
  9. PACKED RED CELLS (RED BLOOD CELLS) [Concomitant]
  10. ONDANSETRON [Suspect]
     Active Substance: ONDANSETRON
     Indication: VOMITING
     Route: 042
  11. DULOXETINE. [Suspect]
     Active Substance: DULOXETINE
     Indication: PRODUCT USED FOR UNKNOWN INDICATION
     Route: 048
  12. ONDANSETRON [Suspect]
     Active Substance: ONDANSETRON
     Indication: ABDOMINAL PAIN
     Route: 042

REACTIONS (11)
  - Abdominal pain [None]
  - Melaena [None]
  - Vomiting [None]
  - Heart rate increased [None]
  - Mental status changes [None]
  - Nausea [None]
  - Serotonin syndrome [None]
  - Blood pressure increased [None]
  - Respiratory rate increased [None]
  - Mydriasis [None]
  - Dizziness [None]
